FAERS Safety Report 16123014 (Version 2)
Quarter: 2019Q2

REPORT INFORMATION
  Report Type: Spontaneous
  Country: NZ (occurrence: NZ)
  Receive Date: 20190327
  Receipt Date: 20190427
  Transmission Date: 20190711
  Serious: Yes (Other)
  Sender: FDA-Public Use
  Company Number: NZ-ABBVIE-19K-118-2714096-00

PATIENT
  Age: 25 Year
  Sex: Male
  Weight: 68 kg

DRUGS (3)
  1. HUMIRA [Suspect]
     Active Substance: ADALIMUMAB
     Indication: PRODUCT USED FOR UNKNOWN INDICATION
     Route: 058
  2. BUDESONIDE. [Concomitant]
     Active Substance: BUDESONIDE
     Indication: PRODUCT USED FOR UNKNOWN INDICATION
  3. MERCAPTOPURINE. [Concomitant]
     Active Substance: MERCAPTOPURINE
     Indication: PRODUCT USED FOR UNKNOWN INDICATION

REACTIONS (22)
  - Anal skin tags [Unknown]
  - Abdominal pain [Unknown]
  - Constipation [Unknown]
  - Rectal haemorrhage [Unknown]
  - Chills [Unknown]
  - Anal stenosis [Unknown]
  - Iron deficiency [Unknown]
  - Abscess intestinal [Unknown]
  - Abdominal pain upper [Unknown]
  - Granuloma [Unknown]
  - Haemorrhoids [Unknown]
  - Crohn^s disease [Unknown]
  - Mass [Unknown]
  - Proctitis [Unknown]
  - Large intestinal stenosis [Unknown]
  - Gastrointestinal mucosal disorder [Unknown]
  - Acrochordon [Unknown]
  - Pyrexia [Unknown]
  - Intestinal perforation [Unknown]
  - Large intestinal ulcer [Unknown]
  - Anal fissure [Unknown]
  - Benign abdominal neoplasm [Unknown]

NARRATIVE: CASE EVENT DATE: 201903
